FAERS Safety Report 24552660 (Version 1)
Quarter: 2024Q4

REPORT INFORMATION
  Report Type: Spontaneous
  Country: US (occurrence: US)
  Receive Date: 20241027
  Receipt Date: 20241027
  Transmission Date: 20250115
  Serious: No
  Sender: GLAXOSMITHKLINE
  Company Number: US-GSK-US2024127974

PATIENT
  Age: 79 Year
  Sex: Male

DRUGS (1)
  1. NUCALA [Suspect]
     Active Substance: MEPOLIZUMAB
     Indication: Chronic obstructive pulmonary disease
     Dosage: UNK
     Dates: start: 202409

REACTIONS (1)
  - Wheezing [Not Recovered/Not Resolved]

NARRATIVE: CASE EVENT DATE: 20241017
